FAERS Safety Report 21376008 (Version 8)
Quarter: 2025Q4

REPORT INFORMATION
  Report Type: Report from Study
  Country: US (occurrence: US)
  Receive Date: 20220926
  Receipt Date: 20251003
  Transmission Date: 20260118
  Serious: Yes (Other)
  Sender: TAKEDA
  Company Number: US-TAKEDA-2020TUS022235

PATIENT
  Age: 69 Year
  Sex: Male
  Weight: 33.107 kg

DRUGS (5)
  1. VEDOLIZUMAB [Suspect]
     Active Substance: VEDOLIZUMAB
     Indication: Colitis ulcerative
     Dosage: 300 MILLIGRAM
  2. VEDOLIZUMAB [Suspect]
     Active Substance: VEDOLIZUMAB
     Indication: Crohn^s disease
     Dosage: 300 MILLIGRAM, Q4WEEKS
     Dates: end: 202505
  3. VEDOLIZUMAB [Suspect]
     Active Substance: VEDOLIZUMAB
     Indication: Colitis ulcerative
     Dosage: 108 MILLIGRAM, Q2WEEKS
     Dates: start: 20250418
  4. VEDOLIZUMAB [Suspect]
     Active Substance: VEDOLIZUMAB
     Indication: Crohn^s disease
     Dosage: 108 MILLIGRAM, Q2WEEKS
     Dates: start: 202505
  5. MODERNA COVID-19 VACCINE [Concomitant]
     Active Substance: ELASOMERAN
     Indication: COVID-19
     Dosage: UNK

REACTIONS (22)
  - Colitis ulcerative [Not Recovered/Not Resolved]
  - Transient ischaemic attack [Recovered/Resolved]
  - Inappropriate schedule of product administration [Unknown]
  - Illness [Not Recovered/Not Resolved]
  - Antibody test abnormal [Unknown]
  - Incorrect dose administered [Unknown]
  - Haematocrit decreased [Unknown]
  - Blood iron decreased [Unknown]
  - Product storage error [Unknown]
  - Drug ineffective [Unknown]
  - Device malfunction [Recovered/Resolved]
  - Injection site pain [Recovered/Resolved]
  - Pulmonary mass [Unknown]
  - Injection site extravasation [Unknown]
  - Hepatitis A virus test positive [Unknown]
  - Injection site swelling [Unknown]
  - Hypoaesthesia [Unknown]
  - Feeling abnormal [Unknown]
  - Arteriosclerosis [Recovered/Resolved]
  - Facial paresis [Unknown]
  - Injection site erythema [Unknown]
  - Pain in extremity [Not Recovered/Not Resolved]

NARRATIVE: CASE EVENT DATE: 20250418
